FAERS Safety Report 6441477-X (Version None)
Quarter: 2009Q4

REPORT INFORMATION
  Report Type: 
  Country: None (occurrence: None)
  Receive Date: 20091116
  Receipt Date: 20091105
  Transmission Date: 20100525
  Serious: Yes (Other)
  Sender: FDA-Public Use
  Company Number: A0816867A

PATIENT
  Sex: Female
  Weight: 3.3 kg

DRUGS (2)
  1. COMBIVIR [Suspect]
     Indication: ANTIVIRAL TREATMENT
     Dosage: 2TAB PER DAY
     Dates: start: 20081017, end: 20081101
  2. LOPINAVIR AND RITONAVIR [Suspect]
     Indication: ANTIVIRAL TREATMENT
     Dates: start: 20081017, end: 20081101

REACTIONS (2)
  - CONGENITAL HIV INFECTION [None]
  - DRUG EXPOSURE DURING PREGNANCY [None]
